FAERS Safety Report 7883909-6 (Version None)
Quarter: 2011Q4

REPORT INFORMATION
  Report Type: 
  Country: None (occurrence: None)
  Receive Date: 20111102
  Receipt Date: 20111019
  Transmission Date: 20120403
  Serious: Yes (Life-Threatening, Hospitalization)
  Sender: FDA-Public Use
  Company Number: JP-JNJFOC-20111100208

PATIENT
  Sex: Male

DRUGS (2)
  1. CETIRIZINE HCL [Suspect]
     Indication: DERMATITIS ATOPIC
     Route: 048
     Dates: start: 19990701, end: 20000401
  2. CETIRIZINE HCL [Suspect]
     Route: 048

REACTIONS (5)
  - LIVER DISORDER [None]
  - LYMPHOCYTE STIMULATION TEST POSITIVE [None]
  - HEPATITIS [None]
  - EOSINOPHILIA [None]
  - MALAISE [None]
